FAERS Safety Report 5238474-9 (Version None)
Quarter: 2007Q1

REPORT INFORMATION
  Report Type: 
  Country: None (occurrence: None)
  Receive Date: 20070215
  Receipt Date: 20070208
  Transmission Date: 20070707
  Serious: No
  Sender: FDA-Public Use
  Company Number: JP-BAXTER-2007BH000477

PATIENT
  Age: 7 Year
  Sex: Male

DRUGS (6)
  1. RECOMBINATE [Suspect]
     Indication: FACTOR VIII DEFICIENCY
     Route: 065
     Dates: start: 20000115, end: 20061231
  2. RECOMBINATE [Suspect]
     Indication: HAEMARTHROSIS
     Route: 065
     Dates: start: 20000115, end: 20061231
  3. RECOMBINATE [Suspect]
     Route: 065
     Dates: start: 20070112, end: 20070112
  4. RECOMBINATE [Suspect]
     Route: 065
     Dates: start: 20070112, end: 20070112
  5. RECOMBINATE [Suspect]
     Route: 065
     Dates: start: 20070113, end: 20070113
  6. RECOMBINATE [Suspect]
     Route: 065
     Dates: start: 20070113, end: 20070113

REACTIONS (2)
  - HYPOTENSION [None]
  - LOSS OF CONSCIOUSNESS [None]
